FAERS Safety Report 4371229-6 (Version None)
Quarter: 2004Q2

REPORT INFORMATION
  Report Type: 
  Country: None (occurrence: None)
  Receive Date: 20040604
  Receipt Date: 20040409
  Transmission Date: 20050107
  Serious: Yes (Hospitalization)
  Sender: FDA-Public Use
  Company Number: PHBS2004JP04831

PATIENT
  Age: 87 Year
  Sex: Female

DRUGS (9)
  1. DIOVAN [Suspect]
     Indication: BLOOD PRESSURE INCREASED
     Dosage: 80 MG/DAY
     Route: 048
     Dates: end: 20040401
  2. PURSENNID [Concomitant]
     Dosage: 24 MG, UNK
     Route: 048
  3. GASTER [Concomitant]
     Dosage: 20 MG, UNK
     Route: 048
  4. MAGNESIUM [Concomitant]
     Dosage: 1 G, UNK
     Route: 048
  5. THEO-DUR [Concomitant]
     Dosage: 200 MG, UNK
     Route: 048
  6. PERSANTIN [Concomitant]
     Dosage: 75 MG, UNK
     Route: 048
  7. LASIX [Concomitant]
     Dosage: 40 MG, UNK
     Route: 048
  8. ALDACTONE [Concomitant]
     Dosage: 25 MG, UNK
     Route: 048
  9. MYSLEE [Concomitant]
     Dosage: 1 DF, UNK
     Route: 048

REACTIONS (5)
  - COMA [None]
  - HYPERINSULINAEMIA [None]
  - HYPOGLYCAEMIA [None]
  - INSULINOMA [None]
  - LOSS OF CONSCIOUSNESS [None]
